FAERS Safety Report 24365848 (Version 3)
Quarter: 2024Q4

REPORT INFORMATION
  Report Type: Report from Study
  Country: CN (occurrence: CN)
  Receive Date: 20240926
  Receipt Date: 20241011
  Transmission Date: 20250114
  Serious: Yes (Hospitalization)
  Sender: EISAI
  Company Number: CN-Eisai-EC-2024-175136

PATIENT
  Age: 58 Year
  Sex: Female
  Weight: 43 kg

DRUGS (2)
  1. ERIBULIN [Suspect]
     Active Substance: ERIBULIN
     Indication: Breast cancer
     Dosage: TWICE EVERY 3 WEEKS
     Route: 042
     Dates: start: 20240712, end: 20240712
  2. ERIBULIN [Suspect]
     Active Substance: ERIBULIN
     Dosage: TWICE EVERY 3 WEEKS
     Route: 042
     Dates: start: 20240724, end: 20240807

REACTIONS (1)
  - Dyspnoea [Recovered/Resolved]

NARRATIVE: CASE EVENT DATE: 20240809
